FAERS Safety Report 5192165-1 (Version None)
Quarter: 2006Q4

REPORT INFORMATION
  Report Type: 
  Country: None (occurrence: None)
  Receive Date: 20061220
  Receipt Date: 20061207
  Transmission Date: 20070319
  Serious: Yes (Hospitalization, Other)
  Sender: FDA-Public Use
  Company Number: HQWYE576107DEC06

PATIENT
  Age: 76 Year
  Sex: Female

DRUGS (12)
  1. CORDARONE [Suspect]
     Dosage: 200 MG 1X PER 1 DAY; ORAL
     Route: 048
     Dates: end: 20060811
  2. ART 50 (DIACEREIN, ) [Suspect]
     Dosage: 50 MG 1X PER 1 DAY; ORAL
     Route: 048
     Dates: end: 20060809
  3. EFFEXOR [Suspect]
     Dosage: 75 MG 1X PER 1 DAY; ORAL
     Dates: end: 20060810
  4. KARDEGIC (ACETYLSALICYLAGE LYSINE, ) [Suspect]
     Dosage: 75 MG 1X PER 1 DAY; ORAL
     Route: 048
     Dates: end: 20060811
  5. TENORMIN [Suspect]
     Dosage: 150 MG, 1X PER 1 DAY; ORAL
     Route: 048
     Dates: end: 20060811
  6. ZOCOR [Suspect]
     Dosage: 40 MG 1X PER 1 DAY; ORAL
     Route: 048
     Dates: end: 20060909
  7. METFORMIN HCL [Concomitant]
  8. ACETAMINOPHEN [Concomitant]
  9. REQUIP [Concomitant]
  10. SINEMET [Concomitant]
  11. MYSOLINE [Concomitant]
  12. ISOSORBIDE DINITRATE [Concomitant]

REACTIONS (6)
  - ANOREXIA [None]
  - CYTOLYTIC HEPATITIS [None]
  - DYSPNOEA [None]
  - HYPONATRAEMIA [None]
  - RENAL FAILURE [None]
  - WEIGHT DECREASED [None]
